FAERS Safety Report 19132906 (Version 1)
Quarter: 2021Q2

REPORT INFORMATION
  Report Type: Spontaneous
  Country: IN (occurrence: IN)
  Receive Date: 20210414
  Receipt Date: 20210414
  Transmission Date: 20210717
  Serious: Yes (Hospitalization, Other)
  Sender: FDA-Public Use
  Company Number: IN-GLENMARK PHARMACEUTICALS-2021GMK053300

PATIENT
  Age: 65 Year
  Sex: Male

DRUGS (4)
  1. RAMIPRIL. [Concomitant]
     Active Substance: RAMIPRIL
     Indication: NEPHROTIC SYNDROME
  2. TORSEMIDE. [Concomitant]
     Active Substance: TORSEMIDE
     Indication: NEPHROTIC SYNDROME
     Dosage: 20 MILLIGRAM, OD
     Route: 065
  3. RAMIPRIL. [Concomitant]
     Active Substance: RAMIPRIL
     Indication: FOCAL SEGMENTAL GLOMERULOSCLEROSIS
     Dosage: 5 MILLIGRAM, OD
     Route: 065
  4. TACROLIMUS. [Suspect]
     Active Substance: TACROLIMUS
     Indication: NEPHROTIC SYNDROME
     Dosage: 2.5 MILLIGRAM, BID (12 HOURS)
     Route: 065

REACTIONS (1)
  - Mania [Recovered/Resolved]
